FAERS Safety Report 5521536-6 (Version None)
Quarter: 2007Q4

REPORT INFORMATION
  Report Type: 
  Country: None (occurrence: None)
  Receive Date: 20071119
  Receipt Date: 20071119
  Transmission Date: 20080405
  Serious: Yes (Other)
  Sender: FDA-Public Use
  Company Number: None

PATIENT
  Sex: Male
  Weight: 174.1813 kg

DRUGS (1)
  1. OXYCODONE HCL [Suspect]
     Indication: OSTEOARTHRITIS
     Dosage: 80MG BID PO  40 MG QD PO
     Route: 048
     Dates: start: 20020101

REACTIONS (3)
  - MALAISE [None]
  - NAUSEA [None]
  - VOMITING [None]
